FAERS Safety Report 11372544 (Version 1)
Quarter: 2015Q3

REPORT INFORMATION
  Report Type: Spontaneous
  Country: US (occurrence: US)
  Receive Date: 20150811
  Receipt Date: 20150811
  Transmission Date: 20151125
  Serious: No
  Sender: FDA-Public Use
  Company Number: US-ELI_LILLY_AND_COMPANY-US201211005252

PATIENT
  Sex: Male
  Weight: 86.17 kg

DRUGS (3)
  1. AXIRON [Suspect]
     Active Substance: TESTOSTERONE
     Indication: BLOOD TESTOSTERONE DECREASED
     Dosage: 30 MG, QD
     Route: 061
  2. AXIRON [Suspect]
     Active Substance: TESTOSTERONE
     Dosage: 60 MG (2 PUMPS), QD
     Route: 061
  3. AXIRON [Suspect]
     Active Substance: TESTOSTERONE
     Dosage: 90 MG (3 PUMPS), QD
     Route: 061
     Dates: end: 20121107

REACTIONS (1)
  - Therapy responder [Unknown]
